FAERS Safety Report 20560768 (Version 1)
Quarter: 2022Q1

REPORT INFORMATION
  Report Type: Spontaneous
  Country: US (occurrence: US)
  Receive Date: 20220307
  Receipt Date: 20220307
  Transmission Date: 20220423
  Serious: No
  Sender: FDA-Public Use
  Company Number: US-AMGEN-USASP2022037334

PATIENT
  Sex: Male

DRUGS (9)
  1. OTEZLA [Suspect]
     Active Substance: APREMILAST
     Indication: Psoriasis
     Dosage: 30 MILLIGRAM, BID
     Route: 048
     Dates: start: 20160321
  2. ALPRAZOLAM [Concomitant]
     Active Substance: ALPRAZOLAM
     Dosage: 5 TO 20 MILLIGRAM
  3. DAFLONEX XL [Concomitant]
     Dosage: UNK
  4. VICKS DAYQUIL [Concomitant]
     Active Substance: DEXTROMETHORPHAN HYDROBROMIDE\GUAIFENESIN
     Dosage: UNK
  5. VICKS NYQUIL COUGH [Concomitant]
     Active Substance: DEXTROMETHORPHAN HYDROBROMIDE\DOXYLAMINE SUCCINATE
     Dosage: UNK
  6. FLONASE [Concomitant]
     Active Substance: FLUTICASONE PROPIONATE
     Dosage: 0.05 PERCENT
  7. FLONASE ALLERGY RELIEF [Concomitant]
     Active Substance: FLUTICASONE PROPIONATE
     Dosage: 50 MICROGRAM
  8. GLUCOSAMINE [Concomitant]
     Active Substance: GLUCOSAMINE
     Dosage: 500 MILLIGRAM
  9. VITAMIN D3 [Concomitant]
     Active Substance: CHOLECALCIFEROL
     Dosage: UNK

REACTIONS (1)
  - Gastrointestinal disorder [Not Recovered/Not Resolved]
